FAERS Safety Report 25355695 (Version 1)
Quarter: 2025Q2

REPORT INFORMATION
  Report Type: Spontaneous
  Country: US (occurrence: US)
  Receive Date: 20250525
  Receipt Date: 20250525
  Transmission Date: 20250717
  Serious: Yes (Hospitalization, Other)
  Sender: AUROBINDO
  Company Number: US-MLMSERVICE-20250505-PI500207-00271-1

PATIENT
  Age: 78 Year
  Sex: Female

DRUGS (6)
  1. PREDNISONE [Suspect]
     Active Substance: PREDNISONE
     Indication: Asthma
     Dosage: 20 MILLIGRAM, ONCE A DAY (FOUR PILLS DAILY DURING THE FIRST WEEK)
     Route: 048
  2. PREDNISONE [Suspect]
     Active Substance: PREDNISONE
     Dosage: 15 MILLIGRAM, ONCE A DAY (THREE PILLS DAILY DURING THE SECOND WEEK)
     Route: 048
  3. PREDNISONE [Suspect]
     Active Substance: PREDNISONE
     Dosage: 10 MILLIGRAM, ONCE A DAY (TWO PILLS DAILY DURING THE THIRD WEEK
  4. PREDNISONE [Suspect]
     Active Substance: PREDNISONE
     Dosage: 5 MILLIGRAM, ONCE A DAY (ONE PILL DAILY DURING THE FOURTH WEEK)
  5. PREDNISONE [Suspect]
     Active Substance: PREDNISONE
     Dosage: 5 MILLIGRAM, EVERY OTHER DAY (ONE PILL EVERY OTHER DAY DURING THE FIFTH WEEK)
  6. SOLU-MEDROL [Suspect]
     Active Substance: METHYLPREDNISOLONE SODIUM SUCCINATE
     Indication: Asthma
     Route: 065

REACTIONS (5)
  - Blood loss anaemia [Unknown]
  - Osteonecrosis [Recovering/Resolving]
  - Pathological fracture [Recovering/Resolving]
  - Femur fracture [Recovering/Resolving]
  - Joint dislocation [Recovering/Resolving]
